FAERS Safety Report 22103618 (Version 1)
Quarter: 2023Q1

REPORT INFORMATION
  Report Type: Spontaneous
  Country: CN (occurrence: CN)
  Receive Date: 20230316
  Receipt Date: 20230316
  Transmission Date: 20230418
  Serious: Yes (Hospitalization)
  Sender: FDA-Public Use
  Company Number: CN-PFIZER INC-PV202300049379

PATIENT
  Age: 38 Year
  Sex: Male
  Weight: 70 kg

DRUGS (6)
  1. TIGECYCLINE [Interacting]
     Active Substance: TIGECYCLINE
     Indication: Anti-infective therapy
     Dosage: 50 MG, 2X/DAY
     Route: 041
     Dates: start: 20230213, end: 202303
  2. TIGECYCLINE [Interacting]
     Active Substance: TIGECYCLINE
     Indication: Pneumonia bacterial
  3. TIGECYCLINE [Interacting]
     Active Substance: TIGECYCLINE
     Indication: Anti-infective therapy
     Dosage: 100 MG (FIRST DOSE)
     Route: 041
     Dates: start: 20230202, end: 20230211
  4. TIGECYCLINE [Interacting]
     Active Substance: TIGECYCLINE
     Indication: Pneumonia bacterial
     Dosage: 50 MG, 2X/DAY
     Route: 041
     Dates: start: 20230202, end: 20230211
  5. TIGECYCLINE [Interacting]
     Active Substance: TIGECYCLINE
     Indication: Anti-infective therapy
     Dosage: 50 MG, 2X/DAY
     Route: 041
     Dates: start: 20230212, end: 20230212
  6. TIGECYCLINE [Interacting]
     Active Substance: TIGECYCLINE
     Indication: Pneumonia bacterial

REACTIONS (7)
  - Upper gastrointestinal haemorrhage [Recovering/Resolving]
  - Gastrointestinal haemorrhage [Recovering/Resolving]
  - Disease recurrence [Recovering/Resolving]
  - Acinetobacter infection [Unknown]
  - Drug interaction [Unknown]
  - Coagulopathy [Unknown]
  - Vitamin K deficiency [Unknown]

NARRATIVE: CASE EVENT DATE: 20230218
